FAERS Safety Report 23433726 (Version 1)
Quarter: 2024Q1

REPORT INFORMATION
  Report Type: Report from Study
  Country: US (occurrence: US)
  Receive Date: 20240123
  Receipt Date: 20240123
  Transmission Date: 20240410
  Serious: Yes (Other)
  Sender: FDA-Public Use
  Company Number: US-BAUSCH-BL-2024-000778

PATIENT
  Age: 64 Year
  Sex: Female
  Weight: 98.064 kg

DRUGS (10)
  1. XIFAXAN [Suspect]
     Active Substance: RIFAXIMIN
     Indication: Encephalopathy
     Route: 048
     Dates: start: 20220528
  2. LACTULOSE [Concomitant]
     Active Substance: LACTULOSE
     Indication: Encephalopathy
     Dosage: 10GM./15ML
     Route: 048
  3. LEVETIRACETAM [Concomitant]
     Active Substance: LEVETIRACETAM
     Indication: Product used for unknown indication
     Route: 048
  4. LEVOTHYROXINE [Concomitant]
     Active Substance: LEVOTHYROXINE\LEVOTHYROXINE SODIUM
     Indication: Product used for unknown indication
     Route: 048
  5. OMEPRAZOLE [Concomitant]
     Active Substance: OMEPRAZOLE
     Indication: Product used for unknown indication
     Route: 048
  6. ONDANSETRON [Concomitant]
     Active Substance: ONDANSETRON
     Indication: Product used for unknown indication
     Route: 048
  7. ALDACTONE [Concomitant]
     Active Substance: SPIRONOLACTONE
     Indication: Product used for unknown indication
     Route: 048
     Dates: start: 20220528
  8. ALDACTONE [Concomitant]
     Active Substance: SPIRONOLACTONE
     Route: 048
  9. TORSEMIDE [Concomitant]
     Active Substance: TORSEMIDE
     Indication: Product used for unknown indication
     Dosage: TAKE 1-2 PO EACH AM
     Route: 048
  10. BETAFERON [Concomitant]
     Active Substance: INTERFERON BETA-1B
     Indication: Multiple sclerosis
     Dosage: EVERY OTHER DAY

REACTIONS (36)
  - Portal hypertension [Unknown]
  - Ascites [Unknown]
  - Weight decreased [Unknown]
  - Weight increased [Unknown]
  - Early satiety [Unknown]
  - Sleep apnoea syndrome [Unknown]
  - Haemorrhagic diathesis [Unknown]
  - Non-alcoholic fatty liver [Unknown]
  - Generalised oedema [Unknown]
  - Positive airway pressure therapy [Unknown]
  - Sinus disorder [Unknown]
  - Alopecia [Unknown]
  - Vision blurred [Unknown]
  - Increased tendency to bruise [Unknown]
  - Hypoaesthesia [Unknown]
  - Skin ulcer [Unknown]
  - Pollakiuria [Unknown]
  - Head discomfort [Unknown]
  - Hyperhidrosis [Unknown]
  - Chills [Unknown]
  - Back pain [Unknown]
  - Asthenia [Unknown]
  - Arthralgia [Unknown]
  - Abdominal distension [Unknown]
  - Anaemia [Unknown]
  - Constipation [Unknown]
  - Diarrhoea [Unknown]
  - Nausea [Unknown]
  - Vomiting [Unknown]
  - Decreased appetite [Unknown]
  - Dysphagia [Unknown]
  - Muscle spasms [Unknown]
  - Pruritus [Unknown]
  - Abdominal pain [Unknown]
  - Myalgia [Unknown]
  - Cough [Unknown]
